FAERS Safety Report 16929174 (Version 2)
Quarter: 2020Q1

REPORT INFORMATION
  Report Type: Report from Study
  Country: None (occurrence: US)
  Receive Date: 20191017
  Receipt Date: 20200117
  Transmission Date: 20200409
  Serious: Yes (Other)
  Sender: FDA-Public Use
  Company Number: US-ABBVIE-19K-163-2740269-00

PATIENT
  Sex: Male

DRUGS (4)
  1. HUMIRA [Suspect]
     Active Substance: ADALIMUMAB
     Dosage: DAY 15
     Route: 058
     Dates: start: 20190417, end: 20190417
  2. HUMIRA [Suspect]
     Active Substance: ADALIMUMAB
     Indication: COLITIS ULCERATIVE
     Route: 058
     Dates: start: 20190502
  3. HUMIRA [Suspect]
     Active Substance: ADALIMUMAB
     Indication: COLITIS ULCERATIVE
     Dosage: DAY 1
     Route: 058
     Dates: start: 20190403, end: 20190403
  4. HUMIRA [Suspect]
     Active Substance: ADALIMUMAB
     Dosage: DAY 2
     Route: 058
     Dates: start: 20190404, end: 20190404

REACTIONS (18)
  - Intentional product misuse [Unknown]
  - Poor quality sleep [Unknown]
  - Rectal haemorrhage [Recovering/Resolving]
  - Diarrhoea haemorrhagic [Recovering/Resolving]
  - Post procedural complication [Unknown]
  - Weight increased [Unknown]
  - Insomnia [Recovering/Resolving]
  - Diarrhoea [Recovering/Resolving]
  - Haematochezia [Unknown]
  - Abdominal pain upper [Recovering/Resolving]
  - Nasopharyngitis [Recovered/Resolved]
  - Frequent bowel movements [Recovering/Resolving]
  - Constipation [Recovered/Resolved]
  - Depressed mood [Unknown]
  - Hernia [Recovered/Resolved]
  - Insomnia [Recovered/Resolved]
  - Blood pressure fluctuation [Recovering/Resolving]
  - Abdominal pain [Recovering/Resolving]

NARRATIVE: CASE EVENT DATE: 2019
